APPROVED DRUG PRODUCT: IOMERVU
Active Ingredient: IOMEPROL
Strength: 52.5GM IODINE/150ML (350MG IODINE/ML
Dosage Form/Route: SOLUTION;INTRA-ARTERIAL
Application: N216016 | Product #008
Applicant: BRACCO DIAGNOSTICS INC
Approved: Nov 27, 2024 | RLD: Yes | RS: No | Type: DISCN

EXCLUSIVITY:
Code: NCE | Date: Nov 27, 2029